FAERS Safety Report 6397347-9 (Version None)
Quarter: 2009Q4

REPORT INFORMATION
  Report Type: 
  Country: None (occurrence: None)
  Receive Date: 20091012
  Receipt Date: 20091005
  Transmission Date: 20100525
  Serious: Yes (Death, Other)
  Sender: FDA-Public Use
  Company Number: AR-BRISTOL-MYERS SQUIBB COMPANY-14790331

PATIENT
  Age: 70 Year
  Sex: Female

DRUGS (7)
  1. IXEMPRA KIT [Suspect]
     Indication: BREAST CANCER
     Route: 042
     Dates: start: 20090917
  2. LEVOTHYROXINE [Concomitant]
  3. KAON [Concomitant]
  4. AGIOLAX [Concomitant]
  5. FLUDROCORTISONE [Concomitant]
  6. DEXAMETHASONE 0.5MG TAB [Concomitant]
  7. ULCOZOL [Concomitant]

REACTIONS (2)
  - ACUTE RESPIRATORY FAILURE [None]
  - CHEST PAIN [None]
